FAERS Safety Report 15147562 (Version 15)
Quarter: 2019Q2

REPORT INFORMATION
  Report Type: Spontaneous
  Country: CA (occurrence: CA)
  Receive Date: 20180716
  Receipt Date: 20190619
  Transmission Date: 20190711
  Serious: Yes (Hospitalization, Other)
  Sender: FDA-Public Use
  Company Number: CA-CELLTRION INC.-2018CA017889

PATIENT

DRUGS (27)
  1. INFLECTRA [Suspect]
     Active Substance: INFLIXIMAB-DYYB
     Dosage: 530 MG, EVERY 6 WEEKS
     Route: 042
     Dates: start: 20190104
  2. LYRICA [Concomitant]
     Active Substance: PREGABALIN
     Dosage: UNK
  3. IMODIUM [Concomitant]
     Active Substance: LOPERAMIDE HYDROCHLORIDE
     Dosage: UNK
  4. TOPIRAMAT [Concomitant]
     Active Substance: TOPIRAMATE
     Dosage: UNK
  5. MORPHINE [Concomitant]
     Active Substance: MORPHINE
     Dosage: UNK
  6. INFLECTRA [Suspect]
     Active Substance: INFLIXIMAB-DYYB
     Indication: CROHN^S DISEASE
     Dosage: 550 MG, AT 0, 2, 6, THEN EVERY 8 WEEKS
     Route: 042
     Dates: start: 20180129, end: 20180718
  7. INFLECTRA [Suspect]
     Active Substance: INFLIXIMAB-DYYB
     Dosage: 530 MG, EVERY 6 WEEKS
     Route: 042
     Dates: start: 20190401, end: 20190401
  8. CODEINE [Concomitant]
     Active Substance: CODEINE
     Dosage: UNK
  9. LASIX [Concomitant]
     Active Substance: FUROSEMIDE
     Indication: OEDEMA
     Dosage: UNK
  10. CALCIUM [Concomitant]
     Active Substance: CALCIUM
     Dosage: UNK
  11. INFLECTRA [Suspect]
     Active Substance: INFLIXIMAB-DYYB
     Dosage: 530 MG, AT 0, 2, 6, THEN EVERY 8 WEEKS
     Route: 042
     Dates: start: 20180312
  12. INFLECTRA [Suspect]
     Active Substance: INFLIXIMAB-DYYB
     Dosage: 530 MG, EVERY 6 WEEKS
     Route: 042
     Dates: start: 20181112
  13. TYLENOL [Concomitant]
     Active Substance: ACETAMINOPHEN
     Dosage: UNK
  14. ALENDRONATE [Concomitant]
     Active Substance: ALENDRONATE SODIUM
     Dosage: UNK
  15. VITAMIN B12 [Concomitant]
     Active Substance: CYANOCOBALAMIN
     Dosage: UNK
     Route: 048
  16. INFLECTRA [Suspect]
     Active Substance: INFLIXIMAB-DYYB
     Dosage: 530 MG, EVERY 6 WEEKS
     Route: 042
     Dates: start: 20181112
  17. IRON [Concomitant]
     Active Substance: IRON
     Dosage: UNK
  18. INFLECTRA [Suspect]
     Active Substance: INFLIXIMAB-DYYB
     Dosage: 550 MG, AT 0, 2, 6 WEEKS, THEN EVERY 8 WEEKS
     Route: 042
     Dates: start: 20180129
  19. INFLECTRA [Suspect]
     Active Substance: INFLIXIMAB-DYYB
     Dosage: 530 MG, AT 0, 2, 6, THEN EVERY 8 WEEKS
     Route: 042
     Dates: start: 20180212
  20. INFLECTRA [Suspect]
     Active Substance: INFLIXIMAB-DYYB
     Dosage: 530 MG, AT 0, 2, 6, THEN EVERY 8 WEEKS
     Route: 042
     Dates: start: 20180507, end: 20180507
  21. INFLECTRA [Suspect]
     Active Substance: INFLIXIMAB-DYYB
     Dosage: 530 MG, EVERY 6 WEEKS
     Route: 042
     Dates: start: 20190218
  22. IMURAN [Concomitant]
     Active Substance: AZATHIOPRINE
     Dosage: 50 MG, UNK
  23. INFLECTRA [Suspect]
     Active Substance: INFLIXIMAB-DYYB
     Dosage: 530 MG, AT 0, 2, 6, THEN EVERY 8 WEEKS
     Route: 042
     Dates: start: 20180718, end: 20180718
  24. HYDROMORPH CONTIN [Concomitant]
     Active Substance: HYDROMORPHONE
     Dosage: UNK
  25. INFLECTRA [Suspect]
     Active Substance: INFLIXIMAB-DYYB
     Dosage: 530 MG, EVERY 6 WEEKS
     Route: 042
     Dates: start: 20180827
  26. METFORMIN [Concomitant]
     Active Substance: METFORMIN HYDROCHLORIDE
     Dosage: UNK
  27. INFLECTRA [Suspect]
     Active Substance: INFLIXIMAB-DYYB
     Dosage: 530 MG, EVERY 6 WEEKS
     Route: 042
     Dates: start: 20181001

REACTIONS (26)
  - Sensitivity to weather change [Unknown]
  - Dyspnoea [Unknown]
  - Incorrect dose administered [Unknown]
  - Oxygen saturation decreased [Not Recovered/Not Resolved]
  - Swelling [Unknown]
  - Oedema [Not Recovered/Not Resolved]
  - Constipation [Unknown]
  - Ligament sprain [Not Recovered/Not Resolved]
  - Dry mouth [Unknown]
  - Orthopnoea [Not Recovered/Not Resolved]
  - Nasal congestion [Recovered/Resolved]
  - Product dose omission [Unknown]
  - Heat stroke [Recovered/Resolved]
  - Dehydration [Recovered/Resolved]
  - Blood pressure fluctuation [Unknown]
  - Abdominal hernia [Not Recovered/Not Resolved]
  - Diarrhoea [Recovered/Resolved]
  - Face oedema [Unknown]
  - Urinary tract infection [Recovered/Resolved]
  - Headache [Unknown]
  - Dyspnoea exertional [Not Recovered/Not Resolved]
  - Oedema peripheral [Unknown]
  - Oropharyngeal pain [Recovered/Resolved]
  - Dental caries [Recovering/Resolving]
  - Fatigue [Unknown]
  - Condition aggravated [Recovering/Resolving]

NARRATIVE: CASE EVENT DATE: 2018
